FAERS Safety Report 7769820-X (Version None)
Quarter: 2011Q3

REPORT INFORMATION
  Report Type: 
  Country: None (occurrence: None)
  Receive Date: 20110922
  Receipt Date: 20110128
  Transmission Date: 20111222
  Serious: No
  Sender: FDA-Public Use
  Company Number: US-ASTRAZENECA-2011SE05106

PATIENT
  Age: 23 Year
  Sex: Female

DRUGS (2)
  1. SEROQUEL [Suspect]
     Indication: BORDERLINE PERSONALITY DISORDER
     Route: 048
     Dates: start: 20040101
  2. PLAN B ONE-STEP [Interacting]
     Indication: ORAL CONTRACEPTION
     Dates: start: 20110115, end: 20110115

REACTIONS (3)
  - DRUG INTERACTION [None]
  - HOT FLUSH [None]
  - DIZZINESS [None]
